FAERS Safety Report 21560793 (Version 1)
Quarter: 2022Q4

REPORT INFORMATION
  Report Type: Spontaneous
  Country: DE (occurrence: DE)
  Receive Date: 20221107
  Receipt Date: 20221107
  Transmission Date: 20230112
  Serious: Yes (Hospitalization)
  Sender: FDA-Public Use
  Company Number: DE-ADRED-01979-02

PATIENT
  Age: 79 Year
  Sex: Male

DRUGS (17)
  1. HYDROCHLOROTHIAZIDE [Suspect]
     Active Substance: HYDROCHLOROTHIAZIDE
     Indication: Product used for unknown indication
     Dosage: 25 MILLIGRAM (25 MG, 1-0-0-0)
     Route: 048
  2. METOPROLOL [Suspect]
     Active Substance: METOPROLOL
     Indication: Product used for unknown indication
     Dosage: 23.75 MILLIGRAM (23.75 MG, 0.5-0-0.5-0)
     Route: 048
  3. RAMIPRIL [Suspect]
     Active Substance: RAMIPRIL
     Indication: Product used for unknown indication
     Dosage: 2.5 MILLIGRAM (2.5 MG, 1-0-1-0)
     Route: 048
  4. IBUPROFEN [Concomitant]
     Active Substance: IBUPROFEN
     Dosage: 600 MILLIGRAM (600 MG, 1-0-1-0 )
     Route: 048
  5. PIPAMPERONE HYDROCHLORIDE [Concomitant]
     Active Substance: PIPAMPERONE HYDROCHLORIDE
     Dosage: 40 MILLIGRAM (40 MG, 0-0-1-0)
     Route: 048
  6. ZOPICLONE [Concomitant]
     Active Substance: ZOPICLONE
     Dosage: UNK, QD
     Route: 048
  7. HYDROMORPHONE [Concomitant]
     Active Substance: HYDROMORPHONE
     Dosage: 4 MILLIGRAM (4 MG, 1-0-1-0)
     Route: 048
  8. HEPARIN [Concomitant]
     Active Substance: HEPARIN SODIUM
     Dosage: 6000 INTERNATIONAL UNIT (6000 IU, ONCE DAILY)
     Route: 058
  9. LEVOTHYROXINUM NATRICUM [Concomitant]
     Dosage: 50 MICROGRAM (50 ?G, 1-0-0-0)
     Route: 048
  10. CLOPIDOGREL [Concomitant]
     Active Substance: CLOPIDOGREL BISULFATE
     Dosage: 75 MILLIGRAM (75 MG, 1-0-0-0)
     Route: 048
  11. VENLAFAXINE HYDROCHLORIDE [Concomitant]
     Active Substance: VENLAFAXINE HYDROCHLORIDE
     Dosage: 150 MILLIGRAM (150 MG, 1-0-0-0)
     Route: 048
  12. MIRTAZAPINE [Concomitant]
     Active Substance: MIRTAZAPINE
     Dosage: 30 MILLIGRAM (30 MG, 0-0-1-0)
     Route: 048
  13. ASPIRIN [Concomitant]
     Active Substance: ASPIRIN
     Dosage: 100 MILLIGRAM (100 MG, 1-0-0-0)
     Route: 048
  14. PANTOPRAZOLE SODIUM [Concomitant]
     Active Substance: PANTOPRAZOLE SODIUM
     Dosage: 40 MILLIGRAM (40 MG, 0-0-0-1)
     Route: 048
  15. TROSPIUM [Concomitant]
     Active Substance: TROSPIUM
     Dosage: 10 MILLIGRAM (10 MG, 1-0-1-0)
     Route: 048
  16. AGOMELATINE [Concomitant]
     Active Substance: AGOMELATINE
     Dosage: 25 MILLIGRAM (25 MG, 0-0-0-1)
     Route: 048
  17. PREGABALIN [Concomitant]
     Active Substance: PREGABALIN
     Dosage: 75 MILLIGRAM (75 MG, 1-0-1-0)
     Route: 048

REACTIONS (6)
  - Bradycardia [Unknown]
  - Atrioventricular block second degree [Unknown]
  - Dehydration [Unknown]
  - General physical health deterioration [Unknown]
  - Asthenia [Unknown]
  - Hypotension [Unknown]
